FAERS Safety Report 4586860-2 (Version None)
Quarter: 2005Q1

REPORT INFORMATION
  Report Type: 
  Country: None (occurrence: None)
  Receive Date: 20050215
  Receipt Date: 20050201
  Transmission Date: 20050727
  Serious: Yes (Other)
  Sender: FDA-Public Use
  Company Number: 2004BI001623

PATIENT
  Age: 43 Year
  Sex: Male

DRUGS (3)
  1. AVONEX [Suspect]
     Indication: MULTIPLE SCLEROSIS
  2. NEURONTIN [Concomitant]
  3. VALIUM [Concomitant]

REACTIONS (3)
  - ACOUSTIC NEUROMA [None]
  - MUSCLE SPASTICITY [None]
  - POLLAKIURIA [None]
